FAERS Safety Report 24629632 (Version 2)
Quarter: 2024Q4

REPORT INFORMATION
  Report Type: Spontaneous
  Country: US (occurrence: US)
  Receive Date: 20241118
  Receipt Date: 20241129
  Transmission Date: 20250115
  Serious: Yes (Hospitalization, Other)
  Sender: AUROBINDO
  Company Number: US-MLMSERVICE-20241101-PI247635-00039-1

PATIENT
  Age: 48 Year
  Sex: Male

DRUGS (23)
  1. ACYCLOVIR [Suspect]
     Active Substance: ACYCLOVIR
     Indication: Antiviral prophylaxis
     Dosage: UNK
     Route: 065
  2. CIPROFLOXACIN [Suspect]
     Active Substance: CIPROFLOXACIN
     Indication: Antibiotic prophylaxis
     Dosage: UNK
     Route: 065
  3. VORICONAZOLE [Suspect]
     Active Substance: VORICONAZOLE
     Indication: Antifungal prophylaxis
     Dosage: UNK
     Route: 065
  4. CYCLOPHOSPHAMIDE [Suspect]
     Active Substance: CYCLOPHOSPHAMIDE
     Indication: Prophylaxis against transplant rejection
     Dosage: UNK
     Route: 065
  5. MYCOPHENOLIC ACID [Suspect]
     Active Substance: MYCOPHENOLIC ACID
     Indication: Prophylaxis against graft versus host disease
     Dosage: UNK
     Route: 065
  6. MELPHALAN [Suspect]
     Active Substance: MELPHALAN
     Indication: Prophylaxis against graft versus host disease
     Dosage: UNK
     Route: 065
  7. DEXAMETHASONE [Suspect]
     Active Substance: DEXAMETHASONE
     Indication: Prophylaxis against graft versus host disease
     Dosage: UNK
     Route: 065
  8. MICAFUNGIN [Suspect]
     Active Substance: MICAFUNGIN SODIUM
     Indication: Antifungal prophylaxis
     Dosage: UNK
     Route: 065
  9. SULFAMETHOXAZOLE AND TRIMETHOPRIM [Suspect]
     Active Substance: SULFAMETHOXAZOLE\TRIMETHOPRIM
     Indication: Antibiotic prophylaxis
     Dosage: START ON DAY +28
     Route: 065
  10. TACROLIMUS [Concomitant]
     Active Substance: TACROLIMUS
     Indication: Prophylaxis against transplant rejection
     Dosage: UNK
     Route: 065
  11. ORITAVANCIN [Concomitant]
     Active Substance: ORITAVANCIN
     Indication: Bacteraemia
     Dosage: 1200 MG WEEKLY
     Route: 065
  12. ORITAVANCIN [Concomitant]
     Active Substance: ORITAVANCIN
     Dosage: 1,200 MG THROUGH DAY +128
     Route: 065
  13. FLUDARABINE [Concomitant]
     Active Substance: FLUDARABINE PHOSPHATE
     Indication: Product used for unknown indication
     Dosage: UNK
     Route: 065
  14. DAPTOMYCIN [Concomitant]
     Active Substance: DAPTOMYCIN
     Indication: Bacteraemia
     Dosage: 12 MG/KG EVERY 48 HOURS
     Route: 065
  15. LINEZOLID [Concomitant]
     Active Substance: LINEZOLID
     Indication: Bacteraemia
     Dosage: 600 MG  EVERY 12 HOURS ON DAY +70
     Route: 065
  16. TOCILIZUMAB [Concomitant]
     Active Substance: TOCILIZUMAB
     Indication: Product used for unknown indication
     Dosage: UNK
     Route: 065
  17. GRANULOCYTE COLONY-STIMULATING FACTOR NOS [Concomitant]
     Active Substance: GRANULOCYTE COLONY-STIMULATING FACTOR NOS
     Indication: Product used for unknown indication
     Dosage: UNK
     Route: 065
  18. CIDOFOVIR [Concomitant]
     Active Substance: CIDOFOVIR
     Indication: Human polyomavirus infection
     Dosage: ONE DOSE WEEKLY OF INTRAVESICULAR CIDOFOVIR FOR 3 WEEKS.
     Route: 042
  19. AMPICILLIN [Concomitant]
     Active Substance: AMPICILLIN
     Indication: Bacteraemia
     Dosage: UNK
     Route: 065
  20. TIGECYCLINE [Concomitant]
     Active Substance: TIGECYCLINE
     Indication: Bacteraemia
     Dosage: 100 MG EVERY 12 HOURS (DAYS +97-139
     Route: 065
  21. DALFOPRISTIN;QUINUPRISTIN MESILATE [Concomitant]
     Indication: Bacteraemia
     Dosage: UNK
     Route: 065
  22. GENTAMICIN [Concomitant]
     Active Substance: GENTAMICIN
     Indication: Bacteraemia
     Dosage: 3 MG/KG
     Route: 065
  23. FOSFOMYCIN [Concomitant]
     Active Substance: FOSFOMYCIN
     Indication: Bacteraemia
     Dosage: 3 G EVERY 3 DAYS
     Route: 048

REACTIONS (12)
  - Acute kidney injury [Unknown]
  - Febrile neutropenia [Unknown]
  - Hyperbilirubinaemia [Unknown]
  - Pancytopenia [Unknown]
  - Bacterial translocation [Unknown]
  - Cytokine release syndrome [Unknown]
  - Enterococcal bacteraemia [Recovered/Resolved]
  - Dysbiosis [Unknown]
  - Cystitis viral [Unknown]
  - Human polyomavirus infection [Unknown]
  - Drug ineffective [Unknown]
  - Neutropenia [Unknown]
